FAERS Safety Report 9050372 (Version 1)
Quarter: 2013Q1

REPORT INFORMATION
  Report Type: Spontaneous
  Country: IT (occurrence: IT)
  Receive Date: 20130205
  Receipt Date: 20130205
  Transmission Date: 20140127
  Serious: Yes (Hospitalization)
  Sender: FDA-Public Use
  Company Number: IT-BAYER-2013-011993

PATIENT
  Age: 84 Year
  Sex: Female

DRUGS (7)
  1. ACETYLSALICYLIC ACID({=100 MG) [Suspect]
     Indication: ISCHAEMIC CARDIOMYOPATHY
     Dosage: 100 MG, QD
     Route: 048
     Dates: start: 20100101, end: 20121221
  2. DELTACORTENE [Suspect]
     Indication: PAIN
     Dosage: DAILY DOSE 1 DF
     Route: 048
     Dates: start: 20121220, end: 20121221
  3. OMEPRAZOLE [Concomitant]
     Dosage: UNK
  4. BISOPROLOL [Concomitant]
     Dosage: UNK
  5. FUROSEMIDE [Concomitant]
     Dosage: UNK
  6. SPIRIVA [Concomitant]
     Indication: CHRONIC OBSTRUCTIVE PULMONARY DISEASE
     Dosage: UNK
  7. COLECALCIFEROL [Concomitant]
     Dosage: UNK

REACTIONS (2)
  - Anaemia [Recovered/Resolved]
  - Asthenia [Recovered/Resolved]
